FAERS Safety Report 4810948-1 (Version None)
Quarter: 2005Q4

REPORT INFORMATION
  Report Type: 
  Country: None (occurrence: None)
  Receive Date: 20051027
  Receipt Date: 20051020
  Transmission Date: 20060501
  Serious: Yes (Hospitalization)
  Sender: FDA-Public Use
  Company Number: SE-ABBOTT-05P-150-0314673-00

PATIENT
  Age: 70 Year
  Sex: Female

DRUGS (2)
  1. ORUDIS RETARD [Suspect]
     Indication: OSTEOARTHRITIS
     Route: 048
  2. ZOLPIDEM TARTRATE [Concomitant]
     Indication: DRUG USE FOR UNKNOWN INDICATION

REACTIONS (3)
  - HIATUS HERNIA [None]
  - MELAENA [None]
  - STOMACH DISCOMFORT [None]
